FAERS Safety Report 10132701 (Version 2)
Quarter: 2014Q2

REPORT INFORMATION
  Report Type: Spontaneous
  Country: US (occurrence: US)
  Receive Date: 20140428
  Receipt Date: 20140428
  Transmission Date: 20141212
  Serious: No
  Sender: FDA-Public Use
  Company Number: US-MALLINCKRODT-T201401382

PATIENT
  Age: 66 Year
  Sex: Male
  Weight: 81.63 kg

DRUGS (5)
  1. HYDROCODONE/ACETAMINOPHEN [Suspect]
     Indication: PAIN
     Dosage: 7.5/325 MG, PRN
     Route: 048
     Dates: start: 20140211
  2. NEXIUM [Concomitant]
  3. PLAQUENIL [Concomitant]
     Indication: RHEUMATOID ARTHRITIS
  4. TEMAZEPAM [Concomitant]
     Indication: SLEEP DISORDER
  5. HYDROCODONE BITARTRATE AND ACETAMINOPHEN [Concomitant]
     Dosage: 7.5/500 MG
     Dates: end: 201402

REACTIONS (3)
  - Salivary hypersecretion [Recovered/Resolved]
  - Headache [Not Recovered/Not Resolved]
  - Drug ineffective [Recovered/Resolved]
